FAERS Safety Report 15426039 (Version 2)
Quarter: 2018Q4

REPORT INFORMATION
  Report Type: Spontaneous
  Country: JP (occurrence: JP)
  Receive Date: 20180925
  Receipt Date: 20181003
  Transmission Date: 20190204
  Serious: Yes (Other)
  Sender: FDA-Public Use
  Company Number: JP-UCBSA-2018042207

PATIENT
  Age: 4 Year
  Sex: Female

DRUGS (3)
  1. CARBAMAZEPINE. [Concomitant]
     Active Substance: CARBAMAZEPINE
     Indication: SEIZURE
     Dosage: UNKNOWN DOSE
  2. E KEPPRA [Suspect]
     Active Substance: LEVETIRACETAM
     Indication: SEIZURE
     Dosage: UNKNOWN DOSE
     Route: 048
  3. E KEPPRA [Suspect]
     Active Substance: LEVETIRACETAM
     Dosage: /DAYDOSE INCREASED TO 60 MG/KG
     Route: 048

REACTIONS (2)
  - Epilepsy [Recovered/Resolved]
  - Drug ineffective [Unknown]
